FAERS Safety Report 7126088-5 (Version None)
Quarter: 2010Q4

REPORT INFORMATION
  Report Type: 
  Country: None (occurrence: None)
  Receive Date: 20101129
  Receipt Date: 20101122
  Transmission Date: 20110411
  Serious: Yes (Other)
  Sender: FDA-Public Use
  Company Number: IN-ROCHE-742634

PATIENT
  Age: 42 Year
  Sex: Male

DRUGS (4)
  1. PEGINTERFERON ALFA-2A [Suspect]
     Dosage: WITHHELD.
     Route: 065
  2. PEGINTERFERON ALFA-2A [Suspect]
     Dosage: REINITIATED AND STOPPED
     Route: 065
  3. RIBAVIRIN [Suspect]
     Dosage: FREQUENCY: PER DAY,WITHHELD.
     Route: 048
  4. RIBAVIRIN [Suspect]
     Dosage: REINITIATED AND STOPPED
     Route: 048

REACTIONS (4)
  - GLOMERULOSCLEROSIS [None]
  - KIDNEY FIBROSIS [None]
  - NEPHROTIC SYNDROME [None]
  - RENAL TUBULAR ATROPHY [None]
